FAERS Safety Report 5663022-9 (Version None)
Quarter: 2008Q1

REPORT INFORMATION
  Report Type: 
  Country: None (occurrence: None)
  Receive Date: 20080313
  Receipt Date: 20080307
  Transmission Date: 20080703
  Serious: Yes (Hospitalization)
  Sender: FDA-Public Use
  Company Number: JP-ASTRAZENECA-2007AP07502

PATIENT
  Age: 65 Year
  Sex: Female
  Weight: 50 kg

DRUGS (10)
  1. IRESSA [Suspect]
     Indication: LUNG ADENOCARCINOMA
     Route: 048
     Dates: start: 20070820, end: 20071202
  2. LOXONIN [Concomitant]
     Indication: CANCER PAIN
     Route: 048
     Dates: end: 20071206
  3. SELBEX [Concomitant]
     Indication: GASTRITIS
     Dosage: UNKNOWN DOSE
     Route: 048
     Dates: end: 20071206
  4. GASTER D [Concomitant]
     Indication: GASTRITIS
     Route: 048
     Dates: end: 20071206
  5. CLEANAL [Concomitant]
     Indication: BRONCHITIS
     Dosage: UNKNOWN DOSE
     Route: 048
     Dates: end: 20071206
  6. CEREKINON [Concomitant]
     Dosage: UNKNOWN DOSE
     Route: 048
     Dates: end: 20071206
  7. LENDORMIN D [Concomitant]
     Indication: INSOMNIA
     Route: 048
     Dates: end: 20071206
  8. MAGLAX [Concomitant]
     Indication: CONSTIPATION
     Route: 048
     Dates: end: 20071206
  9. VOLTAREN [Concomitant]
     Indication: CANCER PAIN
     Route: 054
     Dates: end: 20071206
  10. UNKNOWNDRUG [Concomitant]
     Indication: BRONCHITIS
     Route: 048
     Dates: end: 20071206

REACTIONS (3)
  - ANOREXIA [None]
  - LIVER DISORDER [None]
  - SKIN DISORDER [None]
